FAERS Safety Report 25713926 (Version 1)
Quarter: 2025Q3

REPORT INFORMATION
  Report Type: Spontaneous
  Country: US (occurrence: US)
  Receive Date: 20250822
  Receipt Date: 20250822
  Transmission Date: 20251021
  Serious: Yes (Hospitalization, Other)
  Sender: NOVITIUM PHARMA
  Company Number: US-NOVITIUMPHARMA-2025USNVP02094

PATIENT
  Age: 72 Year
  Sex: Female

DRUGS (10)
  1. PYRAZINAMIDE [Suspect]
     Active Substance: PYRAZINAMIDE
     Indication: Pulmonary tuberculosis
  2. RIFAMPIN [Concomitant]
     Active Substance: RIFAMPIN
     Indication: Pulmonary tuberculosis
  3. RIFAMPIN [Concomitant]
     Active Substance: RIFAMPIN
  4. RIFAMPIN [Concomitant]
     Active Substance: RIFAMPIN
  5. ISONIAZID [Concomitant]
     Active Substance: ISONIAZID
     Indication: Pulmonary tuberculosis
  6. ISONIAZID [Concomitant]
     Active Substance: ISONIAZID
  7. ISONIAZID [Concomitant]
     Active Substance: ISONIAZID
  8. ETHAMBUTOL [Concomitant]
     Active Substance: ETHAMBUTOL HYDROCHLORIDE
     Indication: Pulmonary tuberculosis
  9. ETHAMBUTOL [Concomitant]
     Active Substance: ETHAMBUTOL HYDROCHLORIDE
  10. ETHAMBUTOL [Concomitant]
     Active Substance: ETHAMBUTOL HYDROCHLORIDE

REACTIONS (1)
  - Immune reconstitution inflammatory syndrome associated tuberculosis [Recovering/Resolving]
